FAERS Safety Report 7124395-3 (Version None)
Quarter: 2010Q4

REPORT INFORMATION
  Report Type: 
  Country: None (occurrence: None)
  Receive Date: 20101126
  Receipt Date: 20101112
  Transmission Date: 20110411
  Serious: Yes (Death)
  Sender: FDA-Public Use
  Company Number: GXKR2010US12812

PATIENT
  Age: 19 Year
  Sex: Male

DRUGS (1)
  1. LAMOTRIGINE [Suspect]
     Dosage: ONE ENTIRE BOTTLE
     Route: 065

REACTIONS (14)
  - ATRIOVENTRICULAR BLOCK [None]
  - CARDIAC PACEMAKER INSERTION [None]
  - DISSEMINATED INTRAVASCULAR COAGULATION [None]
  - DRUG TOXICITY [None]
  - ENDOTRACHEAL INTUBATION [None]
  - GASTRIC LAVAGE [None]
  - HAEMODIALYSIS [None]
  - HYPOTENSION [None]
  - MULTI-ORGAN FAILURE [None]
  - OVERDOSE [None]
  - PULSE ABSENT [None]
  - RENAL FAILURE [None]
  - RESUSCITATION [None]
  - TACHYCARDIA [None]
